FAERS Safety Report 18246194 (Version 2)
Quarter: 2020Q3

REPORT INFORMATION
  Report Type: Spontaneous
  Country: SA (occurrence: SA)
  Receive Date: 20200909
  Receipt Date: 20200916
  Transmission Date: 20201103
  Serious: Yes (Hospitalization, Other)
  Sender: FDA-Public Use
  Company Number: SA-PFIZER INC-2020346574

PATIENT
  Age: 16 Year
  Sex: Male

DRUGS (4)
  1. CYCLOPHOSPHAMIDE. [Suspect]
     Active Substance: CYCLOPHOSPHAMIDE
     Indication: EWING^S SARCOMA
     Dosage: 1200 MG/M2, DAILY (THREE CYCLES, DAILY OVER THREE DAYS, TWO MORE CYCLES)
     Route: 041
     Dates: start: 201801, end: 2018
  2. DOXORUBICIN HCL [Suspect]
     Active Substance: DOXORUBICIN HYDROCHLORIDE
     Indication: EWING^S SARCOMA
     Dosage: 75 MG/M2, DAILY (THREE CYCLES, DAILY OVER THREE DAYS, TWO MORE CYCLES)
     Route: 041
     Dates: start: 201801, end: 2018
  3. ETOPOSIDE. [Suspect]
     Active Substance: ETOPOSIDE
     Indication: EWING^S SARCOMA
     Dosage: 100 MG/M2, DAILY (THREE CYCLES, DAILY OVER THREE DAYS, TWO MORE CYCLES)
     Route: 041
     Dates: start: 201801, end: 2018
  4. VINCRISTINE SULFATE. [Suspect]
     Active Substance: VINCRISTINE SULFATE
     Indication: EWING^S SARCOMA
     Dosage: 2 MG/M2, DAILY (THREE CYCLES, DAILY OVER THREE DAYS, TWO MORE CYCLES)
     Route: 041
     Dates: start: 201801, end: 2018

REACTIONS (1)
  - Febrile neutropenia [Recovered/Resolved]

NARRATIVE: CASE EVENT DATE: 2018
